FAERS Safety Report 11855256 (Version 5)
Quarter: 2016Q1

REPORT INFORMATION
  Report Type: Report from Study
  Country: JP (occurrence: JP)
  Receive Date: 20151221
  Receipt Date: 20160209
  Transmission Date: 20160526
  Serious: Yes (Death, Hospitalization, Other)
  Sender: FDA-Public Use
  Company Number: PHJP2015JP020752

PATIENT
  Age: 1 Year
  Sex: Male

DRUGS (4)
  1. ACZ885 [Suspect]
     Active Substance: CANAKINUMAB
     Dosage: UNK
     Route: 058
     Dates: start: 20151119
  2. ACZ885 [Suspect]
     Active Substance: CANAKINUMAB
     Dosage: 30 MG SUBCUTANEOUS AND 1MG/KG INTRAVENOUS, UNK
     Route: 058
  3. ACZ885 [Suspect]
     Active Substance: CANAKINUMAB
     Indication: CRYOPYRIN ASSOCIATED PERIODIC SYNDROME
     Dosage: UNK
     Route: 058
     Dates: start: 201502
  4. ACZ885 [Suspect]
     Active Substance: CANAKINUMAB
     Indication: PROPHYLAXIS
     Dosage: UNK
     Route: 058
     Dates: start: 20151114

REACTIONS (9)
  - Bacterial sepsis [Not Recovered/Not Resolved]
  - Inappropriate schedule of drug administration [Unknown]
  - C-reactive protein increased [Unknown]
  - Cerebral haemorrhage [Not Recovered/Not Resolved]
  - Cardiac disorder [Fatal]
  - Drug administered to patient of inappropriate age [Unknown]
  - Off label use [Unknown]
  - Incorrect dose administered [Not Recovered/Not Resolved]
  - Weight increased [Unknown]

NARRATIVE: CASE EVENT DATE: 201512
